FAERS Safety Report 17427342 (Version 2)
Quarter: 2020Q1

REPORT INFORMATION
  Report Type: Spontaneous
  Country: ES (occurrence: ES)
  Receive Date: 20200217
  Receipt Date: 20200303
  Transmission Date: 20200409
  Serious: Yes (Hospitalization, Other)
  Sender: FDA-Public Use
  Company Number: ES-BRISTOL-MYERS SQUIBB COMPANY-BMS-2020-011238

PATIENT
  Age: 71 Year
  Sex: Male

DRUGS (1)
  1. PEMBROLIZUMAB. [Suspect]
     Active Substance: PEMBROLIZUMAB
     Indication: MALIGNANT MELANOMA
     Route: 065

REACTIONS (5)
  - Serotonin syndrome [Unknown]
  - Myasthenic syndrome [Unknown]
  - Transaminases increased [Unknown]
  - Immune-mediated myocarditis [Unknown]
  - Hepatic enzyme abnormal [Unknown]
